FAERS Safety Report 25903403 (Version 2)
Quarter: 2025Q4

REPORT INFORMATION
  Report Type: Report from Study
  Country: US (occurrence: US)
  Receive Date: 20251009
  Receipt Date: 20251109
  Transmission Date: 20260119
  Serious: Yes (Other)
  Sender: ABBVIE
  Company Number: US-ABBVIE-6492568

PATIENT
  Age: 40 Year
  Sex: Female

DRUGS (2)
  1. CREON [Suspect]
     Active Substance: PANCRELIPASE AMYLASE\PANCRELIPASE LIPASE\PANCRELIPASE PROTEASE
     Indication: Pancreatitis chronic
     Dosage: LAST ADMIN DATE 2024
     Route: 048
     Dates: start: 2024
  2. CREON [Suspect]
     Active Substance: PANCRELIPASE AMYLASE\PANCRELIPASE LIPASE\PANCRELIPASE PROTEASE
     Indication: Pancreatitis chronic
     Route: 048
     Dates: start: 20241001

REACTIONS (6)
  - Cyst [Recovered/Resolved]
  - Hypokalaemia [Not Recovered/Not Resolved]
  - Epigastric discomfort [Unknown]
  - Vitamin D increased [Unknown]
  - Blood calcium increased [Unknown]
  - Weight increased [Unknown]

NARRATIVE: CASE EVENT DATE: 20241004
